FAERS Safety Report 7875932-2 (Version None)
Quarter: 2011Q4

REPORT INFORMATION
  Report Type: 
  Country: None (occurrence: None)
  Receive Date: 20111031
  Receipt Date: 20111027
  Transmission Date: 20120403
  Serious: Yes (Other)
  Sender: FDA-Public Use
  Company Number: US-ROCHE-791151

PATIENT
  Sex: Female
  Weight: 53.572 kg

DRUGS (1)
  1. ACCUTANE [Suspect]
     Indication: ACNE
     Route: 065

REACTIONS (3)
  - HAEMORRHOIDS [None]
  - PROCTITIS ULCERATIVE [None]
  - INFLAMMATORY BOWEL DISEASE [None]
